FAERS Safety Report 22957369 (Version 2)
Quarter: 2023Q4

REPORT INFORMATION
  Report Type: Report from Study
  Country: CA (occurrence: CA)
  Receive Date: 20230919
  Receipt Date: 20231128
  Transmission Date: 20240110
  Serious: Yes (Other)
  Sender: FDA-Public Use
  Company Number: CA-JNJFOC-20230927593

PATIENT
  Age: 52 Year
  Sex: Female

DRUGS (1)
  1. REMICADE [Suspect]
     Active Substance: INFLIXIMAB
     Indication: Crohn^s disease
     Dosage: ON 12-SEP-2023 THE PATIENT RECEIVED 67 INFUSIONS AND COMPLETED PARTIAL HARVEY-BRADSHAW SURVEY
     Route: 042
     Dates: start: 20160512

REACTIONS (13)
  - Renal impairment [Unknown]
  - Carotid artery disease [Unknown]
  - Thyroid neoplasm [Unknown]
  - Lung disorder [Unknown]
  - Blood cholesterol increased [Unknown]
  - General physical health deterioration [Unknown]
  - Anxiety [Unknown]
  - Malaise [Unknown]
  - Hypertension [Unknown]
  - Abdominal pain [Unknown]
  - Diarrhoea [Unknown]
  - Frequent bowel movements [Unknown]
  - Pyrexia [Unknown]

NARRATIVE: CASE EVENT DATE: 20230101
